FAERS Safety Report 14929586 (Version 1)
Quarter: 2018Q2

REPORT INFORMATION
  Report Type: Spontaneous
  Country: US (occurrence: US)
  Receive Date: 20180523
  Receipt Date: 20180523
  Transmission Date: 20180711
  Serious: Yes (Death, Life-Threatening)
  Sender: FDA-Public Use
  Company Number: US-PROCTER+GAMBLE-GS18058324

PATIENT
  Age: 41 Year
  Sex: Male
  Weight: 137 kg

DRUGS (6)
  1. METHADONE [Suspect]
     Active Substance: METHADONE HYDROCHLORIDE
  2. HYDROCODONE [Suspect]
     Active Substance: HYDROCODONE
  3. QUETIAPINE. [Suspect]
     Active Substance: QUETIAPINE
  4. OXYCODONE [Suspect]
     Active Substance: OXYCODONE
  5. DIPHENHYDRAMINE HCL [Suspect]
     Active Substance: DIPHENHYDRAMINE HYDROCHLORIDE
  6. LIDOCAINE. [Suspect]
     Active Substance: LIDOCAINE

REACTIONS (2)
  - Accidental overdose [Fatal]
  - Toxicity to various agents [Fatal]
